FAERS Safety Report 14680015 (Version 4)
Quarter: 2018Q2

REPORT INFORMATION
  Report Type: Report from Study
  Country: JP (occurrence: JP)
  Receive Date: 20180326
  Receipt Date: 20180503
  Transmission Date: 20180711
  Serious: Yes (Other)
  Sender: FDA-Public Use
  Company Number: JP-UCBSA-2018011923

PATIENT
  Age: 60 Year
  Sex: Female
  Weight: 66 kg

DRUGS (7)
  1. DOVONEX [Concomitant]
     Active Substance: CALCIPOTRIENE
     Indication: PSORIASIS
     Dosage: UNK, AS NEEDED (PRN)
     Route: 062
     Dates: start: 20171208
  2. RINDERON V [Concomitant]
     Active Substance: BETAMETHASONE VALERATE
     Indication: PSORIASIS
     Dosage: UNK, AS NEEDED (PRN)
     Route: 062
     Dates: start: 20171208
  3. OLOPATADINE HYDROCHLORIDE. [Concomitant]
     Active Substance: OLOPATADINE HYDROCHLORIDE
     Indication: PSORIASIS
     Dosage: 5 MG, AS NEEDED (PRN)
     Route: 048
  4. BLINDED CERTOLIZUMAB PEGOL [Suspect]
     Active Substance: CERTOLIZUMAB PEGOL
     Indication: PSORIASIS
     Dosage: UNK, EV 2 WEEKS(QOW)
     Route: 058
     Dates: start: 20170726
  5. BLINDED PLACEBO [Suspect]
     Active Substance: INVESTIGATIONAL PRODUCT
     Indication: PSORIASIS
     Dosage: UNK, EV 2 WEEKS(QOW)
     Route: 058
     Dates: start: 20170726
  6. TEPRENONE [Concomitant]
     Active Substance: TEPRENONE
     Indication: OSTEOARTHRITIS
     Dosage: 150 MG, 3X/DAY (TID)
     Route: 048
     Dates: start: 20131205
  7. LOXOPROFEN [Concomitant]
     Active Substance: LOXOPROFEN
     Indication: OSTEOARTHRITIS
     Dosage: 180 MG, 3X/DAY (TID)
     Route: 048
     Dates: start: 20131205

REACTIONS (1)
  - Neutropenia [Recovered/Resolved]

NARRATIVE: CASE EVENT DATE: 20180110
